FAERS Safety Report 15842797 (Version 10)
Quarter: 2024Q1

REPORT INFORMATION
  Report Type: Spontaneous
  Country: IT (occurrence: IT)
  Receive Date: 20190118
  Receipt Date: 20240312
  Transmission Date: 20240410
  Serious: Yes (Hospitalization, Other)
  Sender: FDA-Public Use
  Company Number: IT-ACRAF SPA-2019-017731

PATIENT
  Age: 32 Year
  Sex: Male
  Weight: 107 kg

DRUGS (7)
  1. IBUPROFEN [Suspect]
     Active Substance: IBUPROFEN
     Indication: Back pain
     Dosage: 600 MG/DAY
     Route: 065
     Dates: start: 2014, end: 2015
  2. IBUPROFEN [Suspect]
     Active Substance: IBUPROFEN
     Indication: Pain in extremity
     Route: 065
     Dates: start: 2014, end: 2015
  3. LEUPROLIDE ACETATE [Suspect]
     Active Substance: ISOPROPYL ALCOHOL\LEUPROLIDE ACETATE
     Indication: Product used for unknown indication
     Dosage: 500 MG/DAY
     Route: 030
  4. STANOZOLOL [Suspect]
     Active Substance: STANOZOLOL
     Indication: Product used for unknown indication
     Dosage: FOR ABOUT LAST 12 YEARS
     Route: 048
  5. MESTEROLONE [Suspect]
     Active Substance: MESTEROLONE
     Indication: Libido disorder
     Dosage: FOR LAST TWO YEARS
     Route: 065
  6. MENOTROPINS [Suspect]
     Active Substance: MENOTROPINS
     Dosage: FOR LAST TWO YEARS
  7. CREATINE [Suspect]
     Active Substance: CREATINE
     Indication: Product used for unknown indication
     Dosage: 7 DAYS PER MONTH
     Route: 065

REACTIONS (3)
  - Drug abuse [Recovering/Resolving]
  - Focal segmental glomerulosclerosis [Recovering/Resolving]
  - Chronic kidney disease [Recovering/Resolving]
